FAERS Safety Report 23288090 (Version 9)
Quarter: 2024Q3

REPORT INFORMATION
  Report Type: Spontaneous
  Country: IN (occurrence: IN)
  Receive Date: 20231212
  Receipt Date: 20240911
  Transmission Date: 20241017
  Serious: Yes (Other)
  Sender: PFIZER
  Company Number: IN-PFIZER INC-PV202200045829

PATIENT
  Age: 73 Year
  Sex: Male

DRUGS (3)
  1. DACOMITINIB [Suspect]
     Active Substance: DACOMITINIB
     Indication: Lung neoplasm malignant
     Dosage: 30 MG, 1X/DAY
     Route: 048
     Dates: start: 20210820
  2. DACOMITINIB [Suspect]
     Active Substance: DACOMITINIB
     Dosage: 15 MG, 1X/DAY
     Route: 048
  3. DACOMITINIB [Suspect]
     Active Substance: DACOMITINIB
     Dosage: 30 MG, 1X/DAY X 2 MONTH
     Route: 048

REACTIONS (10)
  - Blood pressure systolic increased [Unknown]
  - Cerebral microhaemorrhage [Unknown]
  - Cerebral atrophy [Unknown]
  - Blood pressure diastolic decreased [Unknown]
  - Oxygen saturation decreased [Unknown]
  - Rash [Recovering/Resolving]
  - Weight fluctuation [Unknown]
  - Dysphonia [Unknown]
  - Pyrexia [Unknown]
  - Paronychia [Unknown]

NARRATIVE: CASE EVENT DATE: 20230509
